FAERS Safety Report 4344244-6 (Version None)
Quarter: 2004Q2

REPORT INFORMATION
  Report Type: 
  Country: None (occurrence: None)
  Receive Date: 20040419
  Receipt Date: 20040330
  Transmission Date: 20050107
  Serious: Yes (Hospitalization, Other)
  Sender: FDA-Public Use
  Company Number: B0328620A

PATIENT
  Age: 50 Year
  Sex: Male

DRUGS (8)
  1. AVANDIA [Suspect]
     Dosage: 4 MG/ PER DAY/ ORAL
     Route: 048
  2. METFORMIN HYDROCHLORIDE [Concomitant]
  3. GLYBURIDE [Concomitant]
  4. LISINOPRIL [Concomitant]
  5. HYDROCHLOROTHIAZIDE [Concomitant]
  6. METOPROLOL [Concomitant]
  7. ATORVASTATIN CALCIUM [Concomitant]
  8. INSULIN [Concomitant]

REACTIONS (17)
  - ACUTE MYOCARDIAL INFARCTION [None]
  - ACUTE RESPIRATORY DISTRESS SYNDROME [None]
  - AKINESIA [None]
  - CARDIAC FAILURE CONGESTIVE [None]
  - CARDIOMYOPATHY [None]
  - HAEMODIALYSIS [None]
  - HYPOTENSION [None]
  - ISCHAEMIC HEPATITIS [None]
  - MALAISE [None]
  - MYALGIA [None]
  - PANCREATITIS ACUTE [None]
  - PULMONARY OEDEMA [None]
  - RENAL FAILURE ACUTE [None]
  - SHOCK [None]
  - VASODILATATION [None]
  - VENTRICULAR HYPOKINESIA [None]
  - VIRAL MYOCARDITIS [None]
